FAERS Safety Report 26069149 (Version 1)
Quarter: 2025Q4

REPORT INFORMATION
  Report Type: Spontaneous
  Country: US (occurrence: None)
  Receive Date: 20251119
  Receipt Date: 20251119
  Transmission Date: 20260118
  Serious: Yes (Hospitalization)
  Sender: FDA-CTU
  Company Number: None

PATIENT
  Age: 23 Year
  Sex: Female

DRUGS (17)
  1. PULMOZYME [Suspect]
     Active Substance: DORNASE ALFA
     Dosage: OTHER QUANTITY : 2.5MG/2.5MG ?OTHER FREQUENCY : ONCE DAILY?OTHER ROUTE : VIA NEBULIZER ?
     Route: 055
     Dates: start: 20150826
  2. ALBUTEROL [Concomitant]
     Active Substance: ALBUTEROL
  3. CEFEPIME [Concomitant]
     Active Substance: CEFEPIME HYDROCHLORIDE
  4. CIPROFLOXACIN [Concomitant]
     Active Substance: CIPROFLOXACIN
  5. Colistimeth [Concomitant]
  6. CREON [Concomitant]
     Active Substance: PANCRELIPASE AMYLASE\PANCRELIPASE LIPASE\PANCRELIPASE PROTEASE
  7. DOCUSATE [Concomitant]
     Active Substance: DOCUSATE
  8. ERYTHROCIN [Concomitant]
     Active Substance: ERYTHROMYCIN LACTOBIONATE
  9. FLOVENT [Concomitant]
     Active Substance: FLUTICASONE PROPIONATE
  10. Miralax Pow [Concomitant]
  11. Multi Vit/fl CHW [Concomitant]
  12. VITAMINS [Concomitant]
     Active Substance: VITAMINS
  13. NASONEX [Concomitant]
     Active Substance: MOMETASONE FUROATE
  14. NOVOLOG [Concomitant]
     Active Substance: INSULIN ASPART
  15. PREVACID [Concomitant]
     Active Substance: LANSOPRAZOLE
  16. Tobines [Concomitant]
  17. VANCOMYCIN [Concomitant]
     Active Substance: VANCOMYCIN

REACTIONS (1)
  - Condition aggravated [None]

NARRATIVE: CASE EVENT DATE: 20251119
